FAERS Safety Report 10955204 (Version 1)
Quarter: 2015Q1

REPORT INFORMATION
  Report Type: Spontaneous
  Country: US (occurrence: US)
  Receive Date: 20150326
  Receipt Date: 20150326
  Transmission Date: 20150721
  Serious: Yes (Death, Hospitalization, Other)
  Sender: FDA-Public Use
  Company Number: US-AMGEN-USASP2015026872

PATIENT
  Age: 74 Year
  Sex: Female
  Weight: 53.61 kg

DRUGS (9)
  1. SENOKOT [Concomitant]
     Active Substance: SENNOSIDES
     Dosage: 8.6 MG, BID
  2. XGEVA [Suspect]
     Active Substance: DENOSUMAB
     Indication: METASTASES TO BONE
     Dosage: UNK, QMO
     Route: 065
     Dates: start: 20140522
  3. SUTENT [Suspect]
     Active Substance: SUNITINIB MALATE
     Indication: METASTATIC RENAL CELL CARCINOMA
     Dosage: 50 MG, QD
     Route: 048
     Dates: start: 20140530, end: 20141016
  4. XANAX [Concomitant]
     Active Substance: ALPRAZOLAM
     Dosage: 0.25 MG, BID
  5. ASPIRIN                            /00002701/ [Concomitant]
     Active Substance: ASPIRIN
     Dosage: 81 MG, QD
  6. PEPCID                             /00305201/ [Concomitant]
     Active Substance: ALUMINUM HYDROXIDE\MAGNESIUM CARBONATE
     Dosage: UNK
  7. LEXAPRO [Concomitant]
     Active Substance: ESCITALOPRAM OXALATE
     Dosage: 10 MG, QD
  8. PROCARDIA [Concomitant]
     Active Substance: NIFEDIPINE
     Dosage: 60 MG, QD
  9. LOPRESSOR [Concomitant]
     Active Substance: METOPROLOL TARTRATE
     Dosage: 50 MG, BID

REACTIONS (23)
  - Anaemia [Unknown]
  - Metastases to central nervous system [Unknown]
  - Syncope [Unknown]
  - Postoperative fever [Unknown]
  - Hypotension [Unknown]
  - Mucosal inflammation [Unknown]
  - Atrophy [Unknown]
  - Back pain [Unknown]
  - Renal cell carcinoma [Fatal]
  - Renal haemorrhage [Unknown]
  - Haematuria [Recovered/Resolved]
  - Procedural pain [Unknown]
  - Iron deficiency anaemia [Unknown]
  - Nervousness [Unknown]
  - Mouth ulceration [Unknown]
  - Hypertension [Unknown]
  - Depression [Unknown]
  - Fatigue [Unknown]
  - Chronic obstructive pulmonary disease [Unknown]
  - Ecchymosis [Unknown]
  - Asthenia [Unknown]
  - Thrombocytopenia [Unknown]
  - Bone pain [Unknown]

NARRATIVE: CASE EVENT DATE: 20140613
